FAERS Safety Report 7651488-4 (Version None)
Quarter: 2011Q3

REPORT INFORMATION
  Report Type: 
  Country: None (occurrence: None)
  Receive Date: 20110802
  Receipt Date: 20110726
  Transmission Date: 20111222
  Serious: Yes (Death, Other)
  Sender: FDA-Public Use
  Company Number: PHHO2010BR14922

PATIENT
  Sex: Male
  Weight: 127 kg

DRUGS (8)
  1. TASIGNA [Suspect]
     Indication: CHRONIC MYELOID LEUKAEMIA
     Dosage: 400 MG, BID
     Route: 048
     Dates: start: 20100406
  2. ANTIARRHYTHMICS, CLASS I AND III [Concomitant]
  3. SIMVASTATIN [Concomitant]
  4. LOSARTAN POTASSIUM [Concomitant]
  5. ENALAPRIL MALEATE [Concomitant]
  6. INSULIN [Concomitant]
  7. ATENOLOL [Concomitant]
  8. AMLODIPINE [Concomitant]

REACTIONS (5)
  - CONCOMITANT DISEASE PROGRESSION [None]
  - DIABETES MELLITUS [None]
  - HYPERTENSION [None]
  - OBESITY [None]
  - ACUTE MYOCARDIAL INFARCTION [None]
